FAERS Safety Report 9440108 (Version 2)
Quarter: 2013Q3

REPORT INFORMATION
  Report Type: Spontaneous
  Country: JP (occurrence: JP)
  Receive Date: 20130805
  Receipt Date: 20130807
  Transmission Date: 20140515
  Serious: Yes (Other)
  Sender: FDA-Public Use
  Company Number: JP-PFIZER INC-2013224986

PATIENT
  Age: 69 Year
  Sex: Female

DRUGS (5)
  1. LIPITOR [Suspect]
     Dosage: 10 MG, 1X/DAY
     Route: 048
     Dates: start: 2005, end: 201307
  2. KLARICID [Concomitant]
     Indication: COUGH
     Dosage: UNK
     Route: 048
     Dates: start: 201305, end: 201307
  3. MUCOSOLVAN [Concomitant]
     Indication: COUGH
     Dosage: UNK
     Route: 048
     Dates: start: 201305, end: 201307
  4. MEDICON [Concomitant]
     Indication: COUGH
     Dosage: UNK
     Route: 048
     Dates: start: 201305, end: 201307
  5. AZEPTIN [Concomitant]
     Indication: COUGH
     Dosage: UNK
     Route: 048
     Dates: start: 201305, end: 201307

REACTIONS (7)
  - Tremor [Recovering/Resolving]
  - Nausea [Recovering/Resolving]
  - Asthenia [Recovering/Resolving]
  - Angle closure glaucoma [Recovering/Resolving]
  - Cough [Unknown]
  - Eczema [Recovering/Resolving]
  - Dermatitis [Recovering/Resolving]
